FAERS Safety Report 6725390-6 (Version None)
Quarter: 2010Q2

REPORT INFORMATION
  Report Type: 
  Country: None (occurrence: None)
  Receive Date: 20100514
  Receipt Date: 20100507
  Transmission Date: 20101027
  Serious: Yes (Hospitalization, Other)
  Sender: FDA-Public Use
  Company Number: US-ASTRAZENECA-2009SE33193

PATIENT
  Age: 69 Year
  Sex: Female

DRUGS (22)
  1. SEROQUEL [Suspect]
     Route: 048
  2. SEROQUEL [Suspect]
     Route: 048
     Dates: start: 20090606
  3. ASPIRIN [Concomitant]
  4. MULTI-VITAMINS [Concomitant]
     Dosage: ONCE A DAY
     Route: 048
  5. VITAMIN C [Concomitant]
     Route: 048
  6. VITAMIN E [Concomitant]
     Route: 048
  7. REGLAN [Concomitant]
     Route: 048
  8. ASPIR-LOW [Concomitant]
     Route: 048
  9. PRAVACHOL [Concomitant]
     Route: 048
  10. PLAVIX [Concomitant]
     Route: 048
  11. LISINOPRIL [Concomitant]
     Route: 048
  12. SERTRALINE [Concomitant]
     Route: 048
  13. LOPRESSOR [Concomitant]
     Route: 048
  14. LASIX [Concomitant]
     Route: 048
  15. AMARYL [Concomitant]
     Route: 048
  16. NITROGLYCERIN [Concomitant]
     Route: 062
  17. HUMULIN N [Concomitant]
     Dosage: TWICE A DAY
     Route: 058
  18. TYLENOL PM EXTRA STRENGTH [Concomitant]
     Dosage: 500 MG-25 MG AT BEDTIME
     Route: 048
  19. XALATAN 0.005 % OPTHALMIC SOLUTION [Concomitant]
     Dosage: ONCE A DAY
  20. ATROPINE CARE 1 % OPHTHALMIC SOLUTION [Concomitant]
     Dosage: ONCE A DAY
  21. COSOPT 2 %-0.5 % OPHTHALMIC SOLUTION [Concomitant]
     Dosage: 2 %-0.5 %, ONCE A DAY
  22. ALPHAGAN P 0.15 % OPHTHALMIC SOLUTION [Concomitant]
     Dosage: ONCE A DAY

REACTIONS (9)
  - ACUTE MYOCARDIAL INFARCTION [None]
  - CHEST PAIN [None]
  - FATIGUE [None]
  - MYOCARDIAL INFARCTION [None]
  - OEDEMA PERIPHERAL [None]
  - TACHYCARDIA [None]
  - TACHYPNOEA [None]
  - TARDIVE DYSKINESIA [None]
  - WHEEZING [None]
